FAERS Safety Report 14434229 (Version 1)
Quarter: 2018Q1

REPORT INFORMATION
  Report Type: Report from Study
  Country: US (occurrence: US)
  Receive Date: 20180124
  Receipt Date: 20180124
  Transmission Date: 20180509
  Serious: Yes (Hospitalization, Other)
  Sender: FDA-Public Use
  Company Number: US-NAPPMUNDI-USA-2018-0142461

PATIENT
  Age: 58 Year
  Sex: Male

DRUGS (1)
  1. OXYCODONE HYDROCHLORIDE. [Suspect]
     Active Substance: OXYCODONE HYDROCHLORIDE
     Indication: PRODUCT USED FOR UNKNOWN INDICATION
     Dosage: (2 X 80 MG)160 MG, Q6H
     Route: 048

REACTIONS (5)
  - Sepsis [Unknown]
  - Leg amputation [Unknown]
  - Osteomyelitis [Unknown]
  - Foot amputation [Unknown]
  - Off label use [Unknown]

NARRATIVE: CASE EVENT DATE: 201711
